APPROVED DRUG PRODUCT: BUPROPION HYDROCHLORIDE
Active Ingredient: BUPROPION HYDROCHLORIDE
Strength: 300MG
Dosage Form/Route: TABLET, EXTENDED RELEASE;ORAL
Application: A203650 | Product #001
Applicant: SUN PHARMACEUTICAL INDUSTRIES LTD
Approved: Dec 31, 2020 | RLD: No | RS: No | Type: DISCN